FAERS Safety Report 4402732-8 (Version None)
Quarter: 2004Q3

REPORT INFORMATION
  Report Type: 
  Country: None (occurrence: None)
  Receive Date: 20040721
  Receipt Date: 20031023
  Transmission Date: 20050211
  Serious: No
  Sender: FDA-Public Use
  Company Number: US-BRISTOL-MYERS SQUIBB COMPANY-12417762

PATIENT
  Age: 58 Year
  Sex: Female
  Weight: 49 kg

DRUGS (4)
  1. ESTRACE [Suspect]
     Indication: MENOPAUSAL SYMPTOMS
     Route: 048
     Dates: start: 19840101, end: 20031001
  2. AMBIEN [Concomitant]
     Indication: INSOMNIA
     Dates: start: 20030101
  3. ALLEGRA [Concomitant]
  4. HYFLEX-DS [Concomitant]
     Dates: end: 20031001

REACTIONS (1)
  - COELIAC DISEASE [None]
